FAERS Safety Report 5931309-8 (Version None)
Quarter: 2008Q4

REPORT INFORMATION
  Report Type: 
  Country: None (occurrence: None)
  Receive Date: 20081024
  Receipt Date: 20081024
  Transmission Date: 20090506
  Serious: No
  Sender: FDA-Public Use
  Company Number: None

PATIENT
  Sex: Female
  Weight: 104 kg

DRUGS (1)
  1. TEMOZOLOMIDE [Suspect]
     Dosage: 4515 MG

REACTIONS (1)
  - LYMPHOPENIA [None]
